FAERS Safety Report 6382797-7 (Version None)
Quarter: 2009Q3

REPORT INFORMATION
  Report Type: 
  Country: None (occurrence: None)
  Receive Date: 20090928
  Receipt Date: 20090928
  Transmission Date: 20100115
  Serious: No
  Sender: FDA-Public Use
  Company Number: None

PATIENT
  Age: 54 Year
  Sex: Female
  Weight: 61.2356 kg

DRUGS (1)
  1. INDOCIN [Suspect]
     Indication: ARTHRITIS
     Dosage: 50 MG TWICE DAILY PO
     Route: 048
     Dates: start: 20090916, end: 20090923

REACTIONS (1)
  - MIGRAINE [None]
